FAERS Safety Report 7822869-0 (Version None)
Quarter: 2011Q4

REPORT INFORMATION
  Report Type: 
  Country: None (occurrence: None)
  Receive Date: 20111018
  Receipt Date: 20110111
  Transmission Date: 20120403
  Serious: No
  Sender: FDA-Public Use
  Company Number: US-ASTRAZENECA-2010SE56920

PATIENT
  Age: 67 Year
  Sex: Female

DRUGS (2)
  1. TOPAMAX [Concomitant]
  2. SYMBICORT [Suspect]
     Indication: ASTHMA
     Dosage: 80/4.5 UG DAILY
     Route: 055
     Dates: start: 20101129, end: 20101208

REACTIONS (3)
  - DRUG DOSE OMISSION [None]
  - THERAPY CESSATION [None]
  - HUNGER [None]
